FAERS Safety Report 17064506 (Version 1)
Quarter: 2019Q4

REPORT INFORMATION
  Report Type: Spontaneous
  Country: US (occurrence: US)
  Receive Date: 20191023
  Receipt Date: 20191023
  Transmission Date: 20200122
  Serious: Yes (Other)
  Sender: FDA-Public Use
  Company Number: None

PATIENT
  Age: 40 Year
  Sex: Female
  Weight: 67.13 kg

DRUGS (2)
  1. MIRENA [Suspect]
     Active Substance: LEVONORGESTREL
     Indication: CONTRACEPTION
     Dosage: ?          OTHER ROUTE:IUD?
     Dates: start: 20190507, end: 20191010
  2. MIRENA [Suspect]
     Active Substance: LEVONORGESTREL
     Indication: HAEMORRHAGE
     Dosage: ?          OTHER ROUTE:IUD?
     Dates: start: 20190507, end: 20191010

REACTIONS (11)
  - Anger [None]
  - Depressed mood [None]
  - Headache [None]
  - Abdominal pain [None]
  - Aura [None]
  - Muscle spasms [None]
  - Menorrhagia [None]
  - Arthralgia [None]
  - Mood swings [None]
  - Nausea [None]
  - Paranoia [None]

NARRATIVE: CASE EVENT DATE: 20191004
